FAERS Safety Report 4971422-5 (Version None)
Quarter: 2006Q2

REPORT INFORMATION
  Report Type: 
  Country: None (occurrence: None)
  Receive Date: 20060413
  Receipt Date: 20060119
  Transmission Date: 20061013
  Serious: Yes (Death)
  Sender: FDA-Public Use
  Company Number: EC-ABBOTT-06P-047-0323496-00

PATIENT
  Sex: Male
  Weight: 53 kg

DRUGS (3)
  1. KALETRA [Suspect]
     Indication: HIV INFECTION
     Dosage: 400/100 MG
     Route: 048
     Dates: start: 20051016, end: 20051102
  2. LAMIVUDINE + ZIDOVUDINE [Suspect]
     Indication: HIV INFECTION
     Dosage: 300/150 MG
     Route: 048
     Dates: start: 20051016, end: 20051102
  3. FLUCONAZOLE [Concomitant]
     Indication: RESPIRATORY TRACT INFECTION BACTERIAL
     Route: 048
     Dates: start: 20051016, end: 20051102

REACTIONS (3)
  - BILIRUBIN CONJUGATED INCREASED [None]
  - BLOOD BILIRUBIN INCREASED [None]
  - BONE MARROW FAILURE [None]
